FAERS Safety Report 22223471 (Version 1)
Quarter: 2023Q2

REPORT INFORMATION
  Report Type: Spontaneous
  Country: IN (occurrence: IN)
  Receive Date: 20230418
  Receipt Date: 20230418
  Transmission Date: 20230722
  Serious: Yes (Other)
  Sender: FDA-Public Use
  Company Number: IN-GSK-IN2023GSK052777

PATIENT

DRUGS (7)
  1. DOLUTEGRAVIR [Suspect]
     Active Substance: DOLUTEGRAVIR
     Indication: HIV wasting syndrome
     Dosage: 50 MG
  2. LAMIVUDINE [Suspect]
     Active Substance: LAMIVUDINE
     Indication: HIV wasting syndrome
     Dosage: 300 MG
  3. TENOFOVIR DISOPROXIL FUMARATE [Suspect]
     Active Substance: TENOFOVIR DISOPROXIL FUMARATE
     Indication: HIV wasting syndrome
     Dosage: 300 MG
  4. FLUCONAZOLE [Concomitant]
     Active Substance: FLUCONAZOLE
     Indication: Cryptosporidiosis infection
     Dosage: 300 MG, 1D
  5. FLUCONAZOLE [Concomitant]
     Active Substance: FLUCONAZOLE
     Indication: Oral candidiasis
  6. NITAZOXANIDE [Concomitant]
     Active Substance: NITAZOXANIDE
     Indication: Cryptosporidiosis infection
     Dosage: 500 MG, BID
  7. NITAZOXANIDE [Concomitant]
     Active Substance: NITAZOXANIDE
     Indication: Candida infection

REACTIONS (5)
  - Immune reconstitution inflammatory syndrome [Unknown]
  - Atypical mycobacterial infection [Unknown]
  - Asthenia [Unknown]
  - Weight decreased [Unknown]
  - Necrotic lymphadenopathy [Unknown]
